FAERS Safety Report 6082269-3 (Version None)
Quarter: 2009Q1

REPORT INFORMATION
  Report Type: 
  Country: None (occurrence: None)
  Receive Date: 20090123
  Receipt Date: 20080416
  Transmission Date: 20090719
  Serious: Yes (Other)
  Sender: FDA-Public Use
  Company Number: 559246

PATIENT
  Sex: Female

DRUGS (2)
  1. VESANOID [Suspect]
     Indication: ACUTE PROMYELOCYTIC LEUKAEMIA
  2. VESANOID [Suspect]
     Indication: LEUKAEMIA

REACTIONS (1)
  - ACUTE PROMYELOCYTIC LEUKAEMIA [None]
